FAERS Safety Report 6738195-7 (Version None)
Quarter: 2010Q2

REPORT INFORMATION
  Report Type: 
  Country: None (occurrence: None)
  Receive Date: 20100524
  Receipt Date: 20100514
  Transmission Date: 20101027
  Serious: Yes (Death)
  Sender: FDA-Public Use
  Company Number: A0697767A

PATIENT
  Age: 46 Year
  Sex: Male
  Weight: 65.9 kg

DRUGS (9)
  1. AVANDIA [Suspect]
     Dosage: 8MG PER DAY
     Route: 048
     Dates: start: 20050209, end: 20060430
  2. METFORMIN [Concomitant]
  3. HUMALOG [Concomitant]
  4. REGULAR INSULIN [Concomitant]
  5. LANTUS [Concomitant]
  6. ZOCOR [Concomitant]
  7. WELLBUTRIN [Concomitant]
  8. TERAZOSIN HCL [Concomitant]
  9. LISINOPRIL [Concomitant]

REACTIONS (2)
  - CARDIAC ARREST [None]
  - MYOCARDIAL INFARCTION [None]
